FAERS Safety Report 21741470 (Version 2)
Quarter: 2023Q1

REPORT INFORMATION
  Report Type: Other
  Country: CA (occurrence: None)
  Receive Date: 20221216
  Receipt Date: 20230102
  Transmission Date: 20230418
  Serious: No
  Sender: FDA-Public Use
  Company Number: CA-ROCHE-3162380

PATIENT
  Age: 30 Year
  Sex: Female

DRUGS (4)
  1. OCREVUS [Suspect]
     Active Substance: OCRELIZUMAB
     Indication: Relapsing-remitting multiple sclerosis
     Dosage: CONCENTRATE FOR INTRAVENOUS INFUSION, MORE DOSAGE INFORMATION IS 300 MG AT DAY 0 AND 14, THEN 600 MG
     Route: 042
     Dates: start: 20220812
  2. EMGALITY [Concomitant]
     Active Substance: GALCANEZUMAB-GNLM
  3. SUMATRIPTAN [Concomitant]
     Active Substance: SUMATRIPTAN
  4. LYRICA [Concomitant]
     Active Substance: PREGABALIN

REACTIONS (5)
  - Ear pain [Recovering/Resolving]
  - Infusion related reaction [Recovered/Resolved]
  - Headache [Recovered/Resolved]
  - COVID-19 [Unknown]
  - Neuralgia [Unknown]

NARRATIVE: CASE EVENT DATE: 20220812
